FAERS Safety Report 9003198 (Version 1)
Quarter: 2013Q1

REPORT INFORMATION
  Report Type: Spontaneous
  Country: PK (occurrence: PK)
  Receive Date: 20130108
  Receipt Date: 20130108
  Transmission Date: 20140127
  Serious: Yes (Death, Hospitalization)
  Sender: FDA-Public Use
  Company Number: PHHY2013PK001666

PATIENT
  Age: 88 Year
  Sex: Male
  Weight: 68 kg

DRUGS (1)
  1. EXELON PATCH [Suspect]
     Indication: DEMENTIA ALZHEIMER^S TYPE
     Dosage: 9.5 MG, DAILY
     Route: 062
     Dates: start: 20120329, end: 20121225

REACTIONS (1)
  - Cerebral haemorrhage [Fatal]
